FAERS Safety Report 4294495-4 (Version None)
Quarter: 2004Q1

REPORT INFORMATION
  Report Type: 
  Country: None (occurrence: None)
  Receive Date: 20040211
  Receipt Date: 20040128
  Transmission Date: 20041129
  Serious: Yes (Congenital Anomaly)
  Sender: FDA-Public Use
  Company Number: US_031198655

PATIENT
  Age: 1 Day
  Sex: Female
  Weight: 3 kg

DRUGS (10)
  1. ZYPREXA [Suspect]
     Dates: start: 20030301
  2. PROZAC [Suspect]
     Dates: start: 20030301
  3. KLONOPIN [Concomitant]
  4. IBUPROFEN [Concomitant]
  5. ACETAMINOPHEN [Concomitant]
  6. MAGNESIUM HYDROXIDE TAB [Concomitant]
  7. ALUMINUM/MAGNESIUM/SIMETH [Concomitant]
  8. CETYLPYRIDINIUM CHLORIDE [Concomitant]
  9. LOPEDIUM (LOPERAMIDE HYDROCHLORIDE) [Concomitant]
  10. MULTI-VITAMIN [Concomitant]

REACTIONS (9)
  - ALCOHOL USE [None]
  - ANOMALY OF EXTERNAL EAR CONGENITAL [None]
  - CAESAREAN SECTION [None]
  - FACIAL DYSMORPHISM [None]
  - FOETAL ALCOHOL SYNDROME [None]
  - MATERNAL DRUGS AFFECTING FOETUS [None]
  - MICROCEPHALY [None]
  - PARALYSIS [None]
  - SPINE MALFORMATION [None]
